FAERS Safety Report 8915624 (Version 1)
Quarter: 2012Q4

REPORT INFORMATION
  Report Type: 
  Country: US (occurrence: US)
  Receive Date: 20121119
  Receipt Date: 20121119
  Transmission Date: 20130627
  Serious: No
  Sender: FDA-Public Use
  Company Number: US-ASTRAZENECA-2012SE12555

PATIENT
  Age: 41 Year
  Sex: Female

DRUGS (12)
  1. ATENOLOL [Suspect]
     Route: 048
  2. NEXIUM [Suspect]
     Route: 048
  3. ACYCLOVIR [Concomitant]
  4. CEPHALEXIN [Concomitant]
  5. FUROSEMIDE [Concomitant]
  6. LORTAB [Concomitant]
  7. NOVOLOG [Concomitant]
  8. POTASSIUM CHLORIDE [Concomitant]
  9. VISTARIL [Concomitant]
  10. LIPITOR [Concomitant]
  11. TRAMADOL [Concomitant]
  12. FLEXERIL [Concomitant]

REACTIONS (8)
  - Anxiety [Unknown]
  - Type 2 diabetes mellitus [Unknown]
  - Essential hypertension [Unknown]
  - Hyperlipidaemia [Unknown]
  - Pain [Unknown]
  - Gastrooesophageal reflux disease [Unknown]
  - Obesity [Unknown]
  - Rhinitis allergic [Unknown]
